FAERS Safety Report 15964837 (Version 1)
Quarter: 2019Q1

REPORT INFORMATION
  Report Type: Spontaneous
  Country: US (occurrence: US)
  Receive Date: 20190215
  Receipt Date: 20190215
  Transmission Date: 20190418
  Serious: Yes (Hospitalization, Other)
  Sender: FDA-Public Use
  Company Number: US-IPSEN BIOPHARMACEUTICALS, INC.-2019-01714

PATIENT
  Sex: Male

DRUGS (20)
  1. FLUOROURACIL. [Suspect]
     Active Substance: FLUOROURACIL
     Indication: ADENOCARCINOMA PANCREAS
     Dates: start: 20170621, end: 20170621
  2. OPIUM. [Concomitant]
     Active Substance: OPIUM
     Indication: ADENOCARCINOMA PANCREAS
  3. GABAPENTIN. [Concomitant]
     Active Substance: GABAPENTIN
     Indication: NEUROPATHY PERIPHERAL
     Dosage: TAKE 2 CAPSULES 3 TIMES DAILY.
     Route: 048
     Dates: start: 20161118
  4. ONIVYDE [Suspect]
     Active Substance: IRINOTECAN HYDROCHLORIDE
     Indication: ADENOCARCINOMA PANCREAS
     Dates: start: 20170621, end: 20170621
  5. CREON [Concomitant]
     Active Substance: PANCRELIPASE AMYLASE\PANCRELIPASE LIPASE\PANCRELIPASE PROTEASE
     Indication: ADENOCARCINOMA PANCREAS
     Dosage: TAKES 4 CAPS WITH MEALS 1 X DAY MDD: 16
     Route: 048
     Dates: start: 20160323
  6. DEXAMETHASONE. [Concomitant]
     Active Substance: DEXAMETHASONE
     Indication: NAUSEA
     Dosage: TAKE 2 TABLETS DAILY ON DAYS 2,3 AND 4 AFTER TREATMENT
     Route: 048
     Dates: start: 20170627
  7. LIDOCAINE. [Concomitant]
     Active Substance: LIDOCAINE
     Indication: NAUSEA
     Dosage: 5 ML SWISH AND SWALLOW
     Dates: start: 20171102
  8. CHLORHEXIDINE GLUCONATE. [Concomitant]
     Active Substance: CHLORHEXIDINE GLUCONATE
     Indication: NAUSEA
     Dosage: 15 ML SWISH AND SPIT THREE TIMES DAILY.
     Dates: start: 20161102
  9. ENOXAPARIN SODIUM. [Concomitant]
     Active Substance: ENOXAPARIN SODIUM
     Dosage: STRENGTH: 40 MG/0.4 ML?1 INJECTION DAILY
     Route: 058
     Dates: start: 20170531
  10. ONIVYDE [Suspect]
     Active Substance: IRINOTECAN HYDROCHLORIDE
     Dates: start: 20170719, end: 20170719
  11. FLUOROURACIL. [Suspect]
     Active Substance: FLUOROURACIL
     Dates: start: 20170705, end: 20170705
  12. OMEPRAZOLE. [Concomitant]
     Active Substance: OMEPRAZOLE
     Dosage: TAKE 1 CAPSULE DAILY, MDD: 1, TDD: 1
     Route: 048
     Dates: start: 20170705
  13. DEXAMETHASONE. [Concomitant]
     Active Substance: DEXAMETHASONE
     Indication: ADENOCARCINOMA PANCREAS
  14. ONIVYDE [Suspect]
     Active Substance: IRINOTECAN HYDROCHLORIDE
     Dates: start: 20170816, end: 20170816
  15. FLUOROURACIL. [Suspect]
     Active Substance: FLUOROURACIL
     Dates: start: 20170816, end: 20170816
  16. AMLODIPINE BESYLATE. [Concomitant]
     Active Substance: AMLODIPINE BESYLATE
     Route: 048
  17. ONIVYDE [Suspect]
     Active Substance: IRINOTECAN HYDROCHLORIDE
     Dates: start: 20170725, end: 20170725
  18. FLUOROURACIL. [Suspect]
     Active Substance: FLUOROURACIL
     Dates: start: 20170719, end: 20170719
  19. ATORVASTATIN CALCIUM. [Concomitant]
     Active Substance: ATORVASTATIN CALCIUM
     Route: 048
  20. OPIUM. [Concomitant]
     Active Substance: OPIUM
     Indication: DIARRHOEA
     Dosage: TAKE 2 DROPS EVERY 4 HOURS AS NEEDED FOR DIARRHEA
     Route: 048
     Dates: start: 20170803

REACTIONS (2)
  - Disease progression [Unknown]
  - Diarrhoea haemorrhagic [Recovering/Resolving]

NARRATIVE: CASE EVENT DATE: 20170816
